FAERS Safety Report 25869461 (Version 1)
Quarter: 2025Q4

REPORT INFORMATION
  Report Type: Spontaneous
  Country: RU (occurrence: RU)
  Receive Date: 20251001
  Receipt Date: 20251001
  Transmission Date: 20260117
  Serious: Yes (Death, Other)
  Sender: SANOFI AVENTIS
  Company Number: RU-SA-2025SA291935

PATIENT
  Age: 12 Year

DRUGS (1)
  1. BELUMOSUDIL MESYLATE [Suspect]
     Active Substance: BELUMOSUDIL MESYLATE
     Dosage: UNK

REACTIONS (3)
  - Hepatic failure [Fatal]
  - Disease progression [Fatal]
  - Septic shock [Recovered/Resolved]
